FAERS Safety Report 5134948-X (Version None)
Quarter: 2006Q4

REPORT INFORMATION
  Report Type: 
  Country: None (occurrence: None)
  Receive Date: 20061019
  Receipt Date: 20061005
  Transmission Date: 20070319
  Serious: Yes (Hospitalization)
  Sender: FDA-Public Use
  Company Number: 2006SP003889

PATIENT
  Age: 70 Year
  Sex: Female
  Weight: 90.7194 kg

DRUGS (3)
  1. CELESTONE SOLUSPAN [Suspect]
     Indication: BACK PAIN
     Dosage: SEE IMAGE
     Dates: start: 20040801
  2. CELESTONE SOLUSPAN [Suspect]
     Indication: BACK PAIN
     Dosage: SEE IMAGE
     Dates: start: 20060824
  3. LIDOCAINE HYDROCHLORIDE [Suspect]
     Indication: BACK PAIN
     Dosage: 1 ML; ED
     Dates: start: 20060824

REACTIONS (5)
  - ARACHNOIDITIS [None]
  - HEMIPARESIS [None]
  - INCORRECT ROUTE OF DRUG ADMINISTRATION [None]
  - MENINGITIS [None]
  - RADICULOPATHY [None]
